FAERS Safety Report 7509731-8 (Version None)
Quarter: 2011Q2

REPORT INFORMATION
  Report Type: 
  Country: None (occurrence: None)
  Receive Date: 20110527
  Receipt Date: 20110516
  Transmission Date: 20111010
  Serious: Yes (Hospitalization)
  Sender: FDA-Public Use
  Company Number: CA-JNJFOC-20110508993

PATIENT
  Age: 59 Year
  Sex: Male
  Weight: 85.96 kg

DRUGS (8)
  1. METHOTREXATE [Suspect]
     Indication: RHEUMATOID ARTHRITIS
     Route: 048
     Dates: start: 20100201
  2. ATACAND HCT [Concomitant]
     Indication: HYPERTENSION
     Route: 048
     Dates: start: 20090415
  3. NORVASC [Concomitant]
     Indication: HYPERTENSION
     Route: 048
     Dates: start: 20090416
  4. PRILOSEC [Concomitant]
     Indication: PROPHYLAXIS
     Route: 048
     Dates: start: 20090415
  5. FOLIC ACID [Concomitant]
     Indication: PROPHYLAXIS
     Dosage: 4MG, THREE TIMES A DAY AS NECESSARY.  5MG, 6 TO 7 DAYS A WEEK.
     Route: 048
     Dates: start: 20100216
  6. GOLIMUMAB [Suspect]
     Indication: RHEUMATOID ARTHRITIS
     Route: 058
     Dates: start: 20100601
  7. LIPITOR [Concomitant]
     Indication: DYSLIPIDAEMIA
     Route: 048
     Dates: start: 20080615
  8. DILAUDID [Suspect]
     Indication: PAIN MANAGEMENT
     Dosage: 12.5MG TO 20.5MG
     Route: 048
     Dates: start: 20090415

REACTIONS (1)
  - ABDOMINAL PAIN [None]
